FAERS Safety Report 24711987 (Version 2)
Quarter: 2024Q4

REPORT INFORMATION
  Report Type: Spontaneous
  Country: ID (occurrence: ID)
  Receive Date: 20241209
  Receipt Date: 20241212
  Transmission Date: 20250115
  Serious: Yes (Hospitalization, Other)
  Sender: PFIZER
  Company Number: ID-PFIZER INC-PV202400158711

PATIENT
  Age: 30 Year
  Sex: Female

DRUGS (9)
  1. METHYLPREDNISOLONE SODIUM SUCCINATE [Suspect]
     Active Substance: METHYLPREDNISOLONE SODIUM SUCCINATE
     Indication: Systemic lupus erythematosus
     Dosage: 500 MG
     Route: 042
     Dates: start: 202208
  2. METHYLPREDNISOLONE [Suspect]
     Active Substance: METHYLPREDNISOLONE
     Indication: Systemic lupus erythematosus
     Dosage: 48 MG, DAILY
     Route: 048
     Dates: start: 202208
  3. MOMETASONE FUROATE [Concomitant]
     Active Substance: MOMETASONE FUROATE
     Indication: Systemic lupus erythematosus
     Dosage: UNK
     Dates: start: 202208
  4. SODIUM CHLORIDE [Concomitant]
     Active Substance: SODIUM CHLORIDE
     Indication: Systemic lupus erythematosus
     Dosage: UNK
     Dates: start: 202208
  5. HYALURONIC ACID [Concomitant]
     Active Substance: HYALURONIC ACID
     Indication: Systemic lupus erythematosus
     Dosage: UNK
     Dates: start: 202208
  6. NYSTATIN [Concomitant]
     Active Substance: NYSTATIN
     Indication: Systemic lupus erythematosus
     Dosage: ORAL SUSPENSION 100.000 IU/ML
     Route: 048
     Dates: start: 202208
  7. DEXAMETHASONE [Concomitant]
     Active Substance: DEXAMETHASONE
     Indication: Systemic lupus erythematosus
     Dosage: MIXTURE OF OINTMENTS CONTAINING DEXAMETHASONE
     Dates: start: 202208
  8. ACYCLOVIR [Concomitant]
     Active Substance: ACYCLOVIR
     Indication: Antiviral treatment
     Dosage: 200 MG
     Dates: start: 202208
  9. CHLORHEXIDINE GLUCONATE [Concomitant]
     Active Substance: CHLORHEXIDINE GLUCONATE
     Indication: Systemic lupus erythematosus
     Dosage: UNK
     Dates: start: 202208

REACTIONS (2)
  - Oral herpes [Recovered/Resolved]
  - Oral candidiasis [Recovered/Resolved]
